FAERS Safety Report 4662407-7 (Version None)
Quarter: 2005Q2

REPORT INFORMATION
  Report Type: 
  Country: None (occurrence: None)
  Receive Date: 20050516
  Receipt Date: 20050510
  Transmission Date: 20051028
  Serious: Yes (Hospitalization)
  Sender: FDA-Public Use
  Company Number: US-MERCK-0505USA01317

PATIENT
  Age: 18 Year
  Sex: Male

DRUGS (7)
  1. COZAAR [Suspect]
     Route: 048
  2. COREG [Concomitant]
     Route: 065
  3. LANOXIN [Concomitant]
     Route: 065
  4. NEXIUM [Concomitant]
     Route: 065
  5. LASIX [Concomitant]
     Route: 065
  6. ALDACTONE [Concomitant]
     Route: 065
  7. EDECRIN [Suspect]
     Route: 048

REACTIONS (1)
  - EOSINOPHILIA [None]
